FAERS Safety Report 10442008 (Version 2)
Quarter: 2014Q4

REPORT INFORMATION
  Report Type: Spontaneous
  Country: US (occurrence: US)
  Receive Date: 20140909
  Receipt Date: 20141015
  Transmission Date: 20150528
  Serious: No
  Sender: FDA-Public Use
  Company Number: US-PFIZER INC-2014248759

PATIENT
  Age: 88 Year
  Sex: Female
  Weight: 77 kg

DRUGS (2)
  1. JUNIOR STRENGTH ADVIL [Suspect]
     Active Substance: IBUPROFEN
     Indication: ARTHRALGIA
     Dosage: 100 MG, TWO TIMES A DAY
  2. ADVIL [Suspect]
     Active Substance: IBUPROFEN
     Dosage: 200 MG
     Dates: start: 201409, end: 201409

REACTIONS (3)
  - Drug effect incomplete [Unknown]
  - Abdominal pain upper [Unknown]
  - Dizziness [Unknown]

NARRATIVE: CASE EVENT DATE: 201409
